FAERS Safety Report 6840033-9 (Version None)
Quarter: 2010Q3

REPORT INFORMATION
  Report Type: 
  Country: None (occurrence: None)
  Receive Date: 20100713
  Receipt Date: 20100713
  Transmission Date: 20110219
  Serious: Yes (Disabling, Other)
  Sender: FDA-Public Use
  Company Number: None

PATIENT
  Age: 39 Year
  Sex: Female
  Weight: 80.7403 kg

DRUGS (2)
  1. EFFEXOR XR [Suspect]
     Indication: POST-TRAUMATIC STRESS DISORDER
     Dosage: 150 MG 2X DAILY
     Dates: start: 20080101, end: 20100101
  2. VALUME [Concomitant]

REACTIONS (5)
  - ASTHENIA [None]
  - BLINDNESS TRANSIENT [None]
  - MIGRAINE [None]
  - MOVEMENT DISORDER [None]
  - PAIN [None]
